FAERS Safety Report 13465063 (Version 2)
Quarter: 2017Q2

REPORT INFORMATION
  Report Type: Spontaneous
  Country: DE (occurrence: DE)
  Receive Date: 20170421
  Receipt Date: 20170422
  Transmission Date: 20170830
  Serious: Yes (Death, Hospitalization, Other)
  Sender: FDA-Public Use
  Company Number: DE-JNJFOC-20170418727

PATIENT

DRUGS (6)
  1. IBUPROFEN. [Suspect]
     Active Substance: IBUPROFEN
     Indication: OSTEOARTHRITIS
     Route: 065
  2. IBUPROFEN. [Suspect]
     Active Substance: IBUPROFEN
     Indication: RHEUMATOID ARTHRITIS
     Route: 065
  3. ESOMEPRAZOLE [Concomitant]
     Active Substance: ESOMEPRAZOLE
     Indication: GASTROINTESTINAL DISORDER THERAPY
     Dosage: 10-40 MG
     Route: 065
  4. ACETYLSALICYLIC ACID [Concomitant]
     Active Substance: ASPIRIN
     Indication: PROPHYLAXIS
     Dosage: LOW DOSE THERAPY, LESS THAN OR EQUAL TO 325 MG
     Route: 065
  5. IBUPROFEN. [Suspect]
     Active Substance: IBUPROFEN
     Indication: OSTEOARTHRITIS
     Route: 065
  6. IBUPROFEN. [Suspect]
     Active Substance: IBUPROFEN
     Indication: RHEUMATOID ARTHRITIS
     Route: 065

REACTIONS (12)
  - Cerebrovascular accident [Unknown]
  - Cardiac failure [Unknown]
  - Hypertension [Unknown]
  - Iron deficiency anaemia [Unknown]
  - Cardiovascular disorder [Fatal]
  - Renal disorder [Unknown]
  - Myocardial infarction [Unknown]
  - Haemorrhage [Fatal]
  - Angina unstable [Unknown]
  - Overdose [Unknown]
  - Transient ischaemic attack [Unknown]
  - Gastrointestinal disorder [Unknown]
